FAERS Safety Report 12974128 (Version 1)
Quarter: 2016Q4

REPORT INFORMATION
  Report Type: Spontaneous
  Country: US (occurrence: US)
  Receive Date: 20161125
  Receipt Date: 20161125
  Transmission Date: 20170207
  Serious: Yes (Hospitalization)
  Sender: FDA-Public Use
  Company Number: US-ASTRAZENECA-2016SF22983

PATIENT
  Age: 55 Year
  Sex: Female
  Weight: 90.7 kg

DRUGS (10)
  1. CLONIDINE. [Concomitant]
     Active Substance: CLONIDINE
     Indication: PAIN
     Route: 048
  2. LOSARTAN AND HYDROCHLOROTHIAZIDE [Concomitant]
     Active Substance: HYDROCHLOROTHIAZIDE\LOSARTAN POTASSIUM
     Indication: HYPERTENSION
     Route: 048
     Dates: start: 200904
  3. ALENDRONATE SODIUM. [Concomitant]
     Active Substance: ALENDRONATE SODIUM
     Indication: OSTEOPOROSIS
     Route: 048
     Dates: start: 2011
  4. TRAMITEXOLE [Concomitant]
     Indication: RESTLESS LEGS SYNDROME
     Route: 048
     Dates: start: 2013
  5. DIOTIAZEM ER [Concomitant]
     Route: 048
  6. OXYCODONE [Concomitant]
     Active Substance: OXYCODONE
     Indication: PAIN
     Dosage: 5/325, THREE TIMES A DAY
     Route: 048
     Dates: start: 20050614
  7. FLUTICASONATE [Concomitant]
     Indication: DYSPNOEA
     Dosage: 50 UG, TWO SPRAY IN EACH NOSTRIL EACH DAY
     Route: 045
  8. TRAZODONE [Concomitant]
     Active Substance: TRAZODONE HYDROCHLORIDE
     Indication: SLEEP DISORDER
     Dosage: TAKES IT 2 OR 3 TIMES A WEEK
     Route: 048
  9. SYMBICORT [Suspect]
     Active Substance: BUDESONIDE\FORMOTEROL FUMARATE DIHYDRATE
     Dosage: 160/4.5 MCG, TWO PUFFS TWO TIMES A DAY
     Route: 055
  10. LOSARTAN AND HYDROCHLOROTHIAZIDE [Concomitant]
     Active Substance: HYDROCHLOROTHIAZIDE\LOSARTAN POTASSIUM
     Indication: DIURETIC THERAPY
     Route: 048
     Dates: start: 200904

REACTIONS (15)
  - Malaise [Unknown]
  - Heart rate increased [Unknown]
  - Pneumonia [Unknown]
  - Oral pain [Unknown]
  - Speech disorder [Unknown]
  - Mastication disorder [Unknown]
  - Epistaxis [Unknown]
  - Drug dose omission [Unknown]
  - Glossodynia [Unknown]
  - Intentional product misuse [Unknown]
  - Feeling abnormal [Unknown]
  - Nasal dryness [Unknown]
  - Chronic obstructive pulmonary disease [Unknown]
  - Off label use [Unknown]
  - Product use issue [Unknown]

NARRATIVE: CASE EVENT DATE: 2008
